FAERS Safety Report 5463938-2 (Version None)
Quarter: 2007Q3

REPORT INFORMATION
  Report Type: 
  Country: None (occurrence: None)
  Receive Date: 20070921
  Receipt Date: 20070917
  Transmission Date: 20080115
  Serious: No
  Sender: FDA-Public Use
  Company Number: A0666752A

PATIENT
  Age: 60 Year
  Sex: Female
  Weight: 64.1 kg

DRUGS (5)
  1. AVANDARYL [Suspect]
     Dosage: 1TAB PER DAY
     Route: 048
     Dates: start: 20070101, end: 20070501
  2. GLUCOPHAGE [Concomitant]
  3. ENALAPRIL MALEATE [Concomitant]
  4. HYDROCHLOROTHIAZIDE [Concomitant]
  5. NORVASC [Concomitant]

REACTIONS (5)
  - BLOOD GLUCOSE DECREASED [None]
  - LETHARGY [None]
  - MALAISE [None]
  - TREMOR [None]
  - WEIGHT INCREASED [None]
